FAERS Safety Report 10064296 (Version 2)
Quarter: 2014Q2

REPORT INFORMATION
  Report Type: Spontaneous
  Country: US (occurrence: US)
  Receive Date: 20140408
  Receipt Date: 20140408
  Transmission Date: 20141212
  Serious: Yes (Hospitalization)
  Sender: FDA-Public Use
  Company Number: US-AMGEN-USASP2013055633

PATIENT
  Age: 58 Year
  Sex: Female

DRUGS (11)
  1. ENBREL [Suspect]
     Indication: RHEUMATOID ARTHRITIS
     Dosage: 50 MG, QWK
     Route: 058
     Dates: start: 2006
  2. METHOTREXATE [Concomitant]
     Dosage: 1 G, UNK
  3. NABUMETONE [Concomitant]
     Dosage: 500 MG, UNK
  4. FOLIC ACID [Concomitant]
     Dosage: UNK
  5. PLAQUENIL                          /00072602/ [Concomitant]
     Dosage: 200 MG, UNK
  6. VICODIN [Concomitant]
     Dosage: 7.5-300
  7. VITAMIN C                          /00008001/ [Concomitant]
     Dosage: 500 MG, UNK
  8. MAGNESIUM [Concomitant]
     Dosage: 300 MG, UNK
  9. BABY ASPIRIN [Concomitant]
     Dosage: 81 MG, UNK
  10. FISH OIL [Concomitant]
     Dosage: UNK
  11. PREVACID [Concomitant]
     Dosage: 15 MG, UNK

REACTIONS (4)
  - Knee arthroplasty [Recovered/Resolved]
  - Joint destruction [Not Recovered/Not Resolved]
  - Musculoskeletal discomfort [Unknown]
  - Injection site pain [Unknown]
